FAERS Safety Report 10015821 (Version 2)
Quarter: 2014Q2

REPORT INFORMATION
  Report Type: Spontaneous
  Country: BR (occurrence: BR)
  Receive Date: 20140317
  Receipt Date: 20140401
  Transmission Date: 20141212
  Serious: Yes (Other)
  Sender: FDA-Public Use
  Company Number: BR-GLAXOSMITHKLINE-A1064947A

PATIENT
  Age: 76 Year
  Sex: Male
  Weight: 84 kg

DRUGS (1)
  1. COMBODART [Suspect]
     Indication: URINARY RETENTION
     Dosage: 1CAP PER DAY
     Route: 048
     Dates: start: 201311

REACTIONS (3)
  - Anuria [Recovered/Resolved]
  - Bladder catheterisation [Recovered/Resolved]
  - Product quality issue [Unknown]
